FAERS Safety Report 16110814 (Version 2)
Quarter: 2019Q2

REPORT INFORMATION
  Report Type: Report from Study
  Country: US (occurrence: US)
  Receive Date: 20190325
  Receipt Date: 20190515
  Transmission Date: 20190711
  Serious: Yes (Hospitalization)
  Sender: FDA-Public Use
  Company Number: US-BRISTOL-MYERS SQUIBB COMPANY-BMS-2019-022608

PATIENT
  Age: 71 Year
  Sex: Male
  Weight: 63.04 kg

DRUGS (2)
  1. PACLITAXEL ALBUMIN [Suspect]
     Active Substance: PACLITAXEL
     Indication: OROPHARYNGEAL CANCER
     Dosage: 100 MG/M2, QWK
     Route: 042
     Dates: start: 20181128, end: 20190222
  2. NIVOLUMAB [Suspect]
     Active Substance: NIVOLUMAB
     Indication: OROPHARYNGEAL CANCER
     Dosage: 360 MG, Q3WK
     Route: 042
     Dates: start: 20181128, end: 20190222

REACTIONS (7)
  - Diarrhoea [Unknown]
  - Pyrexia [Unknown]
  - Headache [Unknown]
  - Neck pain [Unknown]
  - Asthenia [Recovering/Resolving]
  - Oropharyngeal pain [Unknown]
  - Vomiting [Unknown]

NARRATIVE: CASE EVENT DATE: 20190226
